FAERS Safety Report 15771822 (Version 1)
Quarter: 2018Q4

REPORT INFORMATION
  Report Type: Report from Study
  Country: JP (occurrence: JP)
  Receive Date: 20181228
  Receipt Date: 20181228
  Transmission Date: 20190205
  Serious: Yes (Hospitalization)
  Sender: FDA-Public Use
  Company Number: JP-PFIZER INC-2018367432

PATIENT
  Age: 54 Year
  Sex: Female
  Weight: 48 kg

DRUGS (14)
  1. LOXOPROFEN SODIUM [Concomitant]
     Active Substance: LOXOPROFEN SODIUM
     Indication: BACK PAIN
     Dosage: 60 MG, AS NEEDED
     Route: 048
     Dates: start: 20160606
  2. EZETIMIBE. [Concomitant]
     Active Substance: EZETIMIBE
     Indication: HYPERTRIGLYCERIDAEMIA
  3. BETAMETHASONE D-CHLORPH ENIRAMINE [Concomitant]
     Indication: SEASONAL ALLERGY
     Dosage: 3 TABLET, AS NEEDED
     Route: 048
     Dates: start: 20160223
  4. LOXOPROFEN SODIUM [Concomitant]
     Active Substance: LOXOPROFEN SODIUM
     Indication: HEADACHE
  5. ROSUVASTATIN CALCIUM. [Concomitant]
     Active Substance: ROSUVASTATIN CALCIUM
     Indication: BLOOD CHOLESTEROL INCREASED
     Dosage: 75 MG, 1X/DAY
     Route: 048
     Dates: start: 20180215
  6. ROSUVASTATIN CALCIUM. [Concomitant]
     Active Substance: ROSUVASTATIN CALCIUM
     Indication: HYPERTRIGLYCERIDAEMIA
  7. LOXOPROFEN SODIUM [Concomitant]
     Active Substance: LOXOPROFEN SODIUM
     Indication: MUSCULOSKELETAL PAIN
     Dosage: 100 MG, AS NEEDED (PRN)
     Route: 048
     Dates: start: 20151210
  8. LEVOCETIRIZINE HYDROCHLORIDE [Concomitant]
     Active Substance: LEVOCETIRIZINE HYDROCHLORIDE
     Indication: SEASONAL ALLERGY
     Dosage: 5 MG, AS NEEDED
     Route: 048
     Dates: start: 20170315
  9. EZETIMIBE. [Concomitant]
     Active Substance: EZETIMIBE
     Indication: BLOOD CHOLESTEROL INCREASED
     Dosage: 10 MG, 1X/DAY (QD)
     Route: 048
     Dates: start: 20170517
  10. DIQUAFOSOL SODIUM [Concomitant]
     Active Substance: DIQUAFOSOL TETRASODIUM
     Indication: SEASONAL ALLERGY
     Dosage: 6 DROP, AS NEEDED
     Route: 048
     Dates: start: 20160218
  11. PF-06463922 [Suspect]
     Active Substance: LORLATINIB
     Indication: NON-SMALL CELL LUNG CANCER
     Dosage: 100 MG, ONCE DAILY FOR 21 DAY CYCLE
     Route: 048
     Dates: start: 20151203, end: 20160315
  12. SHOSEIRYUTO [ASARUM SPP. ROOT;CINNAMOMUM CASSIA BARK;EPHEDRA SPP. HERB [Concomitant]
     Indication: SEASONAL ALLERGY
     Dosage: 3 G, AS NEEDED
     Route: 048
     Dates: start: 20170303
  13. PF-06463922 [Suspect]
     Active Substance: LORLATINIB
     Dosage: 75 MG, ONCE DAILY FOR 21 DAY CYCLE
     Route: 048
     Dates: start: 20160406, end: 20180910
  14. REBAMIPIDE [Concomitant]
     Active Substance: REBAMIPIDE
     Indication: GASTRITIS PROPHYLAXIS
     Dosage: 100 MG, AS NEEDED
     Route: 048
     Dates: start: 20171122

REACTIONS (1)
  - Traumatic intracranial haemorrhage [Recovered/Resolved]

NARRATIVE: CASE EVENT DATE: 20180910
